FAERS Safety Report 5065776-1 (Version None)
Quarter: 2006Q3

REPORT INFORMATION
  Report Type: 
  Country: None (occurrence: None)
  Receive Date: 20060731
  Receipt Date: 20060719
  Transmission Date: 20061208
  Serious: Yes (Hospitalization)
  Sender: FDA-Public Use
  Company Number: US-ROCHE-456415

PATIENT
  Age: 48 Year
  Sex: Female

DRUGS (8)
  1. PEGASYS [Suspect]
     Dosage: ROUTE REPORTED AS INJ STRENGHT REPORTED AS 180 MCG/0.5 ML
     Route: 050
     Dates: start: 20060610
  2. RIBAVIRIN [Suspect]
     Route: 048
     Dates: start: 20060610
  3. NICOTROL [Concomitant]
     Dosage: REPORTED AS NICOTROL INHALER
  4. NOVOLOG MIX 70/30 [Concomitant]
  5. SYNTHROID [Concomitant]
     Indication: HYPOTHYROIDISM
  6. UNSPECIFIED DRUG [Concomitant]
     Dosage: DRUG NAME REPORTED AS DIPREXA
  7. UNSPECIFIED DRUG [Concomitant]
     Dosage: DRUG NAME REPORTED AS TOPRAMAX
  8. LITHIUM CARBONATE [Concomitant]

REACTIONS (6)
  - COGNITIVE DISORDER [None]
  - EPISTAXIS [None]
  - PLATELET COUNT DECREASED [None]
  - REFUSAL OF TREATMENT BY PATIENT [None]
  - TRANSIENT ISCHAEMIC ATTACK [None]
  - VISION BLURRED [None]
